FAERS Safety Report 15723602 (Version 6)
Quarter: 2019Q2

REPORT INFORMATION
  Report Type: Spontaneous
  Country: GB (occurrence: GB)
  Receive Date: 20181214
  Receipt Date: 20190605
  Transmission Date: 20190711
  Serious: Yes (Other)
  Sender: FDA-Public Use
  Company Number: GB-SAKK-2018SA339312AA

PATIENT
  Age: 61 Year
  Sex: Female

DRUGS (6)
  1. PENICILLIN V [PHENOXYMETHYLPENICILLIN] [Concomitant]
     Active Substance: PENICILLIN V
     Dosage: 250 MG, BID
     Route: 065
  2. PACLITAXEL. [Concomitant]
     Active Substance: PACLITAXEL
     Dosage: UNK
     Route: 042
     Dates: start: 20190318, end: 20190528
  3. OMEPRAZOLE. [Concomitant]
     Active Substance: OMEPRAZOLE
     Indication: HIATUS HERNIA
     Dosage: 20 MG, QD
     Route: 065
  4. DULOXETINE. [Concomitant]
     Active Substance: DULOXETINE
     Dosage: 90 MG, QD
     Route: 065
  5. CEREZYME [Suspect]
     Active Substance: IMIGLUCERASE
     Dosage: UNK
     Route: 041
     Dates: start: 1992
  6. HERCEPTIN [Concomitant]
     Active Substance: TRASTUZUMAB
     Dosage: UNK
     Route: 042
     Dates: start: 20190318, end: 20190528

REACTIONS (8)
  - Nasal mucosal disorder [Unknown]
  - Catheter site rash [Unknown]
  - Breast cancer [Unknown]
  - Nasopharyngitis [Unknown]
  - Epistaxis [Unknown]
  - Skin discolouration [Unknown]
  - Alopecia [Unknown]
  - Nail bed infection [Unknown]

NARRATIVE: CASE EVENT DATE: 20190312
